FAERS Safety Report 23852751 (Version 1)
Quarter: 2024Q2

REPORT INFORMATION
  Report Type: Spontaneous
  Country: IT (occurrence: IT)
  Receive Date: 20240514
  Receipt Date: 20240514
  Transmission Date: 20240716
  Serious: Yes (Other)
  Sender: FDA-Public Use
  Company Number: None

PATIENT
  Age: 71 Year
  Sex: Female

DRUGS (8)
  1. CAPECITABINE [Suspect]
     Active Substance: CAPECITABINE
     Indication: Colon cancer metastatic
     Dosage: 3RD CYCLE
     Route: 065
     Dates: start: 20230714, end: 20230727
  2. CAPECITABINE [Suspect]
     Active Substance: CAPECITABINE
     Dosage: START OF THERAPY 02/06/2023 - THERAPY TO BE TAKEN FOR 14 DAYS, EVERY 21 DAYS
     Route: 065
     Dates: start: 20230602, end: 20230727
  3. CAPECITABINE [Suspect]
     Active Substance: CAPECITABINE
     Route: 065
     Dates: end: 20230803
  4. CAPECITABINE [Suspect]
     Active Substance: CAPECITABINE
     Dosage: REDUCED DOSE
     Route: 065
     Dates: start: 20231005
  5. CAPECITABINE [Suspect]
     Active Substance: CAPECITABINE
     Dosage: START OF THERAPY 06/2023 - THERAPY FOR 14 DAYS, EVERY 21 DAYS - X CYCLE
     Route: 065
     Dates: start: 20231208, end: 20231222
  6. BEVACIZUMAB [Suspect]
     Active Substance: BEVACIZUMAB
     Indication: Colon cancer metastatic
     Dosage: 3RD CYCLE
     Route: 065
     Dates: start: 20230713, end: 20230713
  7. BEVACIZUMAB [Suspect]
     Active Substance: BEVACIZUMAB
     Dosage: 3RD CYCLE
     Route: 065
     Dates: start: 20230601
  8. BEVACIZUMAB [Suspect]
     Active Substance: BEVACIZUMAB
     Dosage: START OF THERAPY 06/2023 - THERAPY EVERY 21 DAYS - X CYCLE
     Route: 065
     Dates: start: 20231207, end: 20231207

REACTIONS (3)
  - Rectal haemorrhage [Recovering/Resolving]
  - Thrombocytopenia [Not Recovered/Not Resolved]
  - Leukopenia [Recovering/Resolving]

NARRATIVE: CASE EVENT DATE: 20230731
